FAERS Safety Report 15997723 (Version 3)
Quarter: 2019Q2

REPORT INFORMATION
  Report Type: Report from Study
  Country: BR (occurrence: BR)
  Receive Date: 20190222
  Receipt Date: 20190408
  Transmission Date: 20190711
  Serious: Yes (Life-Threatening, Other)
  Sender: FDA-Public Use
  Company Number: PHHY2019BR041709

PATIENT
  Age: 60 Year
  Sex: Male
  Weight: 78 kg

DRUGS (4)
  1. AFINITOR [Suspect]
     Active Substance: EVEROLIMUS
     Indication: METASTASES TO LUNG
  2. AFINITOR [Suspect]
     Active Substance: EVEROLIMUS
     Indication: METASTASES TO THORAX
  3. AFINITOR [Suspect]
     Active Substance: EVEROLIMUS
     Indication: RENAL CANCER
     Dosage: 10 MG, QD
     Route: 048
     Dates: start: 201708, end: 201812
  4. AFINITOR [Suspect]
     Active Substance: EVEROLIMUS
     Indication: METASTASIS

REACTIONS (17)
  - Metastases to thorax [Not Recovered/Not Resolved]
  - Therapeutic response decreased [Unknown]
  - Metastases to lung [Not Recovered/Not Resolved]
  - Metastasis [Not Recovered/Not Resolved]
  - Nausea [Recovered/Resolved]
  - Renal cancer [Not Recovered/Not Resolved]
  - Wound [Recovered/Resolved]
  - Anaemia [Unknown]
  - Acne [Recovered/Resolved]
  - Feeling abnormal [Unknown]
  - Yellow skin [Unknown]
  - Malaise [Unknown]
  - Weight decreased [Not Recovered/Not Resolved]
  - Blood urine present [Unknown]
  - Product use in unapproved indication [Unknown]
  - Malignant neoplasm progression [Not Recovered/Not Resolved]
  - Decreased appetite [Recovered/Resolved]

NARRATIVE: CASE EVENT DATE: 201708
